FAERS Safety Report 25671065 (Version 1)
Quarter: 2025Q3

REPORT INFORMATION
  Report Type: Report from Study
  Country: US (occurrence: US)
  Receive Date: 20250812
  Receipt Date: 20250812
  Transmission Date: 20251020
  Serious: Yes (Other)
  Sender: ABBVIE
  Company Number: US-ABBVIE-6404295

PATIENT
  Sex: Female

DRUGS (1)
  1. RINVOQ [Suspect]
     Active Substance: UPADACITINIB
     Indication: Rheumatoid arthritis
     Route: 048
     Dates: start: 20240923

REACTIONS (4)
  - Chronic lymphocytic leukaemia [Unknown]
  - Spinal operation [Recovered/Resolved]
  - Lymphadenopathy [Unknown]
  - B-cell small lymphocytic lymphoma [Unknown]
